FAERS Safety Report 7765988-X (Version None)
Quarter: 2011Q3

REPORT INFORMATION
  Report Type: 
  Country: None (occurrence: None)
  Receive Date: 20110921
  Receipt Date: 20110323
  Transmission Date: 20111222
  Serious: No
  Sender: FDA-Public Use
  Company Number: US-BAYER-2011-027471

PATIENT
  Age: 19 Year
  Sex: Male
  Weight: 77 kg

DRUGS (2)
  1. CYCLOPHOSPHAMIDE [Concomitant]
  2. ALEVE (CAPLET) [Suspect]
     Dosage: UNK
     Route: 048
     Dates: start: 20110323, end: 20110323

REACTIONS (4)
  - CHOKING [None]
  - DYSPNOEA [None]
  - COUGH [None]
  - NASAL DISCOMFORT [None]
